FAERS Safety Report 10342938 (Version 1)
Quarter: 2014Q3

REPORT INFORMATION
  Report Type: Spontaneous
  Country: US (occurrence: US)
  Receive Date: 20140725
  Receipt Date: 20140725
  Transmission Date: 20150326
  Serious: No
  Sender: FDA-Public Use
  Company Number: US-009507513-1407USA011471

PATIENT
  Sex: Female

DRUGS (3)
  1. CEPHALEX [Concomitant]
     Indication: ARTHROPOD BITE
     Dosage: UNK, QID
     Dates: start: 201407, end: 20140711
  2. COPPERTONE SPORT SUNSCREEN SPF 50 [Suspect]
     Active Substance: AVOBENZONE\HOMOSALATE\OCTISALATE\OCTOCRYLENE\OXYBENZONE
     Indication: PROPHYLAXIS AGAINST SOLAR RADIATION
     Dosage: UNK UNK, QD
     Route: 061
     Dates: start: 20140719
  3. BACTRIM [Concomitant]
     Active Substance: SULFAMETHOXAZOLE\TRIMETHOPRIM
     Indication: ARTHROPOD BITE
     Dosage: UNK, QID
     Dates: start: 201407

REACTIONS (2)
  - Skin swelling [Unknown]
  - Rash [Recovering/Resolving]

NARRATIVE: CASE EVENT DATE: 20140720
